FAERS Safety Report 5410650-1 (Version None)
Quarter: 2007Q3

REPORT INFORMATION
  Report Type: 
  Country: None (occurrence: None)
  Receive Date: 20070810
  Receipt Date: 20070509
  Transmission Date: 20080115
  Serious: No
  Sender: FDA-Public Use
  Company Number: A0650643A

PATIENT
  Sex: Female

DRUGS (4)
  1. PAXIL [Suspect]
     Route: 048
  2. ZANTAC 150 [Suspect]
     Indication: DRUG USE FOR UNKNOWN INDICATION
     Route: 048
  3. TRAZODONE HCL [Concomitant]
  4. BIRTH CONTROL [Concomitant]

REACTIONS (1)
  - FALSE POSITIVE LABORATORY RESULT [None]
